FAERS Safety Report 8618902-9 (Version None)
Quarter: 2012Q3

REPORT INFORMATION
  Report Type: 
  Country: None (occurrence: None)
  Receive Date: 20120824
  Receipt Date: 20120822
  Transmission Date: 20120928
  Serious: Yes (Hospitalization)
  Sender: FDA-Public Use
  Company Number: US-PFIZER INC-2012206537

PATIENT
  Age: 14 Year
  Sex: Female

DRUGS (1)
  1. GEODON [Suspect]
     Indication: AFFECTIVE DISORDER
     Dosage: UNK
     Dates: start: 20120601, end: 20120101

REACTIONS (2)
  - HEART RATE ABNORMAL [None]
  - DRUG INEFFECTIVE [None]
